FAERS Safety Report 9216027 (Version 2)
Quarter: 2013Q2

REPORT INFORMATION
  Report Type: Spontaneous
  Country: GB (occurrence: None)
  Receive Date: 20130404
  Receipt Date: 20130503
  Transmission Date: 20140414
  Serious: Yes (Other)
  Sender: FDA-Public Use
  Company Number: GER/UKI/13/0028873

PATIENT
  Age: 54 Year
  Sex: Female

DRUGS (9)
  1. SERTRALINE [Suspect]
     Indication: ANXIETY
     Dates: start: 20130315, end: 20130413
  2. CITALOPRAM (CITALOPRAM) [Suspect]
     Indication: DEPRESSION
  3. EVOREL SEQUI [Suspect]
     Indication: HORMONE REPLACEMENT THERAPY
     Route: 062
     Dates: start: 201202
  4. EVOREL SEQUI [Suspect]
     Indication: MENOPAUSAL SYMPTOMS
     Route: 062
     Dates: start: 201202
  5. KLIOGEST [Suspect]
     Indication: HORMONE REPLACEMENT THERAPY
     Dates: start: 201204, end: 20120515
  6. FEMOSTON [Suspect]
     Indication: HORMONE REPLACEMENT THERAPY
     Dates: start: 2012, end: 20120820
  7. AMITRIPTYLINE (AMITRIPTYLINE) [Concomitant]
  8. MIRTAZAPINE (MIRTAZAPINE) [Concomitant]
  9. ZOPICLONE (ZOPICLONE) [Concomitant]

REACTIONS (17)
  - Anxiety [None]
  - Otorrhoea [None]
  - Pruritus [None]
  - Headache [None]
  - Emotional distress [None]
  - Oral pain [None]
  - Pain [None]
  - Pain of skin [None]
  - Toothache [None]
  - Grief reaction [None]
  - Vomiting [None]
  - Fear [None]
  - Hypoaesthesia oral [None]
  - Hearing impaired [None]
  - Hypersensitivity [None]
  - Nerve injury [None]
  - Neuralgia [None]
